FAERS Safety Report 15507477 (Version 1)
Quarter: 2018Q4

REPORT INFORMATION
  Report Type: Spontaneous
  Country: US (occurrence: US)
  Receive Date: 20181016
  Receipt Date: 20181016
  Transmission Date: 20190205
  Serious: Yes (Hospitalization)
  Sender: FDA-Public Use
  Company Number: US-JNJFOC-20181022005

PATIENT
  Age: 9 Decade
  Sex: Female

DRUGS (1)
  1. IMBRUVICA [Suspect]
     Active Substance: IBRUTINIB
     Indication: CHRONIC LYMPHOCYTIC LEUKAEMIA
     Dosage: UNK
     Route: 065
     Dates: start: 2017

REACTIONS (4)
  - Fall [Unknown]
  - Hip fracture [Unknown]
  - Urticaria [Unknown]
  - Insomnia [Unknown]

NARRATIVE: CASE EVENT DATE: 2017
